FAERS Safety Report 4854126-9 (Version None)
Quarter: 2005Q4

REPORT INFORMATION
  Report Type: 
  Country: None (occurrence: None)
  Receive Date: 20051125
  Receipt Date: 20050621
  Transmission Date: 20060501
  Serious: Yes (Life-Threatening, Hospitalization)
  Sender: FDA-Public Use
  Company Number: US-JNJFOC-20050404621

PATIENT
  Age: 58 Year
  Sex: Male
  Weight: 78.9259 kg

DRUGS (10)
  1. LEVAQUIN [Suspect]
     Indication: BRONCHITIS
     Dosage: 750 MG, 1 IN 24 HOUR, ORAL
     Route: 048
     Dates: start: 20050411, end: 20050413
  2. PROZAC [Concomitant]
  3. ALTACE [Concomitant]
  4. PLAVIX [Concomitant]
  5. LIPITOR [Concomitant]
  6. DIOVAN [Concomitant]
  7. LAMICTAL [Concomitant]
  8. NEURONTIN [Concomitant]
  9. DOXAZOSIN (DOXAZOSIN) [Concomitant]
  10. ROBITUSSIN AC (CHERACOL /USA/ ) [Concomitant]

REACTIONS (4)
  - ANAPHYLACTIC SHOCK [None]
  - ERYTHEMA MULTIFORME [None]
  - RENAL FAILURE [None]
  - RHABDOMYOLYSIS [None]
